FAERS Safety Report 12721869 (Version 1)
Quarter: 2016Q3

REPORT INFORMATION
  Report Type: Spontaneous
  Country: US (occurrence: US)
  Receive Date: 20160907
  Receipt Date: 20160907
  Transmission Date: 20161109
  Serious: No
  Sender: FDA-Public Use
  Company Number: US-ASTRAZENECA-2016SE90987

PATIENT
  Age: 72 Year
  Sex: Male

DRUGS (4)
  1. FAMOTADINE [Concomitant]
     Indication: GASTROOESOPHAGEAL REFLUX DISEASE
     Route: 065
     Dates: start: 201607
  2. PRILOSEC [Suspect]
     Active Substance: OMEPRAZOLE MAGNESIUM
     Indication: GASTROOESOPHAGEAL REFLUX DISEASE
     Route: 048
     Dates: end: 201607
  3. FAMOTADINE [Concomitant]
     Indication: BARRETT^S OESOPHAGUS
     Route: 065
     Dates: start: 201607
  4. PRILOSEC [Suspect]
     Active Substance: OMEPRAZOLE MAGNESIUM
     Indication: GASTROOESOPHAGEAL REFLUX DISEASE
     Route: 048

REACTIONS (3)
  - Memory impairment [Not Recovered/Not Resolved]
  - Dyspepsia [Recovered/Resolved]
  - Barrett^s oesophagus [Not Recovered/Not Resolved]
